FAERS Safety Report 5839450-5 (Version None)
Quarter: 2008Q3

REPORT INFORMATION
  Report Type: 
  Country: None (occurrence: None)
  Receive Date: 20080807
  Receipt Date: 20080724
  Transmission Date: 20090109
  Serious: Yes (Death, Hospitalization, Other)
  Sender: FDA-Public Use
  Company Number: 2008000881

PATIENT
  Age: 55 Year
  Sex: Male
  Weight: 62 kg

DRUGS (7)
  1. ERLOTINIB (ERLOTINIB HCI) (TABLET) (ERLOTINIB HCI) [Suspect]
     Indication: LUNG ADENOCARCINOMA
     Dosage: 150 MG, QD, ORAL
     Route: 048
     Dates: start: 20080312, end: 20080419
  2. VOLTAREN [Concomitant]
  3. LANSOPRAZOLE [Concomitant]
  4. BEZATROL SR (BEZAFIBRATE) [Concomitant]
  5. PRIMPERAN TAB [Concomitant]
  6. NOVAMIN (PROCHLORPERAZINE) [Concomitant]
  7. OXYCONTIN [Concomitant]

REACTIONS (10)
  - ACTIVITIES OF DAILY LIVING IMPAIRED [None]
  - CHRONIC OBSTRUCTIVE PULMONARY DISEASE [None]
  - HYPOPHAGIA [None]
  - LUNG NEOPLASM MALIGNANT [None]
  - MALIGNANT NEOPLASM PROGRESSION [None]
  - METASTASES TO ADRENALS [None]
  - METASTASES TO LUNG [None]
  - PNEUMONIA [None]
  - PULMONARY EMBOLISM [None]
  - RENAL FAILURE [None]
